FAERS Safety Report 6227567-5 (Version None)
Quarter: 2009Q2

REPORT INFORMATION
  Report Type: 
  Country: None (occurrence: None)
  Receive Date: 20090610
  Receipt Date: 20090610
  Transmission Date: 20091009
  Serious: Yes (Other)
  Sender: FDA-Public Use
  Company Number: None

PATIENT
  Age: 60 Year
  Sex: Female
  Weight: 56.6996 kg

DRUGS (3)
  1. CYMBALTA [Suspect]
     Indication: ANXIETY
     Dosage: 30 MGS DAILY PO
     Route: 048
     Dates: start: 20090201, end: 20090602
  2. CYMBALTA [Suspect]
     Indication: DEPRESSION
     Dosage: 30 MGS DAILY PO
     Route: 048
     Dates: start: 20090201, end: 20090602
  3. CYMBALTA [Suspect]
     Indication: POST-TRAUMATIC STRESS DISORDER
     Dosage: 30 MGS DAILY PO
     Route: 048
     Dates: start: 20090201, end: 20090602

REACTIONS (21)
  - ANGER [None]
  - BLINDNESS [None]
  - CONVERSION DISORDER [None]
  - CRYING [None]
  - DEPRESSION [None]
  - DISTURBANCE IN ATTENTION [None]
  - DROOLING [None]
  - DRUG WITHDRAWAL SYNDROME [None]
  - FEELING ABNORMAL [None]
  - FORMICATION [None]
  - HOMICIDAL IDEATION [None]
  - HYPERHIDROSIS [None]
  - HYPERSOMNIA [None]
  - INSOMNIA [None]
  - IRRITABILITY [None]
  - LETHARGY [None]
  - PARAESTHESIA [None]
  - PRURITUS [None]
  - SKIN ODOUR ABNORMAL [None]
  - STRESS [None]
  - WRONG TECHNIQUE IN DRUG USAGE PROCESS [None]
